FAERS Safety Report 25213805 (Version 1)
Quarter: 2025Q2

REPORT INFORMATION
  Report Type: Spontaneous
  Country: FR (occurrence: FR)
  Receive Date: 20250418
  Receipt Date: 20250418
  Transmission Date: 20250717
  Serious: Yes (Hospitalization)
  Sender: TEVA
  Company Number: None

PATIENT
  Age: 53 Year
  Sex: Female
  Weight: 88 kg

DRUGS (33)
  1. CARBOPLATIN [Suspect]
     Active Substance: CARBOPLATIN
     Indication: Disseminated large cell lymphoma
     Route: 042
     Dates: start: 20240417, end: 20240417
  2. CARBOPLATIN [Suspect]
     Active Substance: CARBOPLATIN
     Indication: Disseminated large cell lymphoma
     Route: 042
     Dates: start: 20240531, end: 20240531
  3. CARBOPLATIN [Suspect]
     Active Substance: CARBOPLATIN
     Indication: Disseminated large cell lymphoma
     Route: 042
     Dates: start: 20241024, end: 20241024
  4. CYTARABINE [Suspect]
     Active Substance: CYTARABINE
     Indication: Disseminated large cell lymphoma
     Route: 042
     Dates: start: 20240417, end: 20240418
  5. CYTARABINE [Suspect]
     Active Substance: CYTARABINE
     Indication: Disseminated large cell lymphoma
     Route: 042
     Dates: start: 20240531, end: 20240601
  6. BACTRIM [Concomitant]
     Active Substance: SULFAMETHOXAZOLE\TRIMETHOPRIM
     Indication: Opportunistic infection prophylaxis
     Route: 048
  7. PROCARBAZINE HYDROCHLORIDE [Concomitant]
     Active Substance: PROCARBAZINE HYDROCHLORIDE
     Indication: Disseminated large cell lymphoma
     Dosage: R-MPV
     Route: 048
     Dates: start: 20241122, end: 20241129
  8. PROCARBAZINE HYDROCHLORIDE [Concomitant]
     Active Substance: PROCARBAZINE HYDROCHLORIDE
     Indication: Disseminated large cell lymphoma
     Dosage: R-MPV
     Route: 048
     Dates: start: 20241227, end: 20250103
  9. PROCARBAZINE HYDROCHLORIDE [Concomitant]
     Active Substance: PROCARBAZINE HYDROCHLORIDE
     Indication: Disseminated large cell lymphoma
     Dosage: R-DHAP PROTOCOL
     Route: 048
     Dates: start: 20240305, end: 20240312
  10. PROCARBAZINE HYDROCHLORIDE [Concomitant]
     Active Substance: PROCARBAZINE HYDROCHLORIDE
     Indication: Disseminated large cell lymphoma
     Route: 048
     Dates: start: 20240130, end: 20240206
  11. VALACYCLOVIR HYDROCHLORIDE [Concomitant]
     Active Substance: VALACYCLOVIR HYDROCHLORIDE
     Indication: Opportunistic infection prophylaxis
     Route: 048
  12. GABAPENTIN [Concomitant]
     Active Substance: GABAPENTIN
     Indication: Neuralgia
     Route: 048
  13. VINCRISTINE SULFATE [Concomitant]
     Active Substance: VINCRISTINE SULFATE
     Indication: Disseminated large cell lymphoma
     Route: 042
     Dates: start: 20241206, end: 20241206
  14. VINCRISTINE SULFATE [Concomitant]
     Active Substance: VINCRISTINE SULFATE
     Indication: Disseminated large cell lymphoma
     Route: 042
     Dates: start: 20240305, end: 20240305
  15. VINCRISTINE SULFATE [Concomitant]
     Active Substance: VINCRISTINE SULFATE
     Indication: Disseminated large cell lymphoma
     Route: 042
     Dates: start: 20241227, end: 20241227
  16. VINCRISTINE SULFATE [Concomitant]
     Active Substance: VINCRISTINE SULFATE
     Indication: Disseminated large cell lymphoma
     Route: 042
     Dates: start: 20240130, end: 20240130
  17. VINCRISTINE SULFATE [Concomitant]
     Active Substance: VINCRISTINE SULFATE
     Indication: Disseminated large cell lymphoma
     Route: 042
     Dates: start: 20240214, end: 20240214
  18. VINCRISTINE SULFATE [Concomitant]
     Active Substance: VINCRISTINE SULFATE
     Indication: Disseminated large cell lymphoma
     Route: 042
     Dates: start: 20241122, end: 20241122
  19. METHOTREXATE [Concomitant]
     Active Substance: METHOTREXATE
     Indication: Disseminated large cell lymphoma
     Route: 042
     Dates: start: 20240305, end: 20240305
  20. METHOTREXATE [Concomitant]
     Active Substance: METHOTREXATE
     Indication: Disseminated large cell lymphoma
     Route: 042
     Dates: start: 20241122, end: 20241122
  21. METHOTREXATE [Concomitant]
     Active Substance: METHOTREXATE
     Indication: Disseminated large cell lymphoma
     Route: 042
     Dates: start: 20241206, end: 20241206
  22. METHOTREXATE [Concomitant]
     Active Substance: METHOTREXATE
     Indication: Disseminated large cell lymphoma
     Route: 042
     Dates: start: 20240130, end: 20240130
  23. METHOTREXATE [Concomitant]
     Active Substance: METHOTREXATE
     Indication: Disseminated large cell lymphoma
     Route: 042
     Dates: start: 20241227, end: 20241227
  24. METHOTREXATE [Concomitant]
     Active Substance: METHOTREXATE
     Indication: Disseminated large cell lymphoma
     Route: 042
     Dates: start: 20240214, end: 20240214
  25. ZOPICLONE [Concomitant]
     Active Substance: ZOPICLONE
     Indication: Insomnia
     Route: 048
  26. RITUXIMAB [Suspect]
     Active Substance: RITUXIMAB
     Indication: Disseminated large cell lymphoma
     Route: 042
     Dates: start: 20240305, end: 20240305
  27. RITUXIMAB [Suspect]
     Active Substance: RITUXIMAB
     Indication: Disseminated large cell lymphoma
     Route: 042
     Dates: start: 20241122, end: 20241122
  28. RITUXIMAB [Suspect]
     Active Substance: RITUXIMAB
     Indication: Disseminated large cell lymphoma
     Route: 042
     Dates: start: 20240909, end: 20240909
  29. RITUXIMAB [Suspect]
     Active Substance: RITUXIMAB
     Indication: Disseminated large cell lymphoma
     Route: 042
     Dates: start: 20240531, end: 20240531
  30. RITUXIMAB [Suspect]
     Active Substance: RITUXIMAB
     Indication: Disseminated large cell lymphoma
     Route: 042
     Dates: start: 20240130, end: 20240130
  31. RITUXIMAB [Suspect]
     Active Substance: RITUXIMAB
     Indication: Disseminated large cell lymphoma
     Route: 042
     Dates: start: 20241227, end: 20241227
  32. RITUXIMAB [Suspect]
     Active Substance: RITUXIMAB
     Indication: Disseminated large cell lymphoma
     Route: 042
     Dates: start: 20241023, end: 20241023
  33. RITUXIMAB [Suspect]
     Active Substance: RITUXIMAB
     Indication: Disseminated large cell lymphoma
     Route: 042
     Dates: start: 20240417, end: 20240417

REACTIONS (1)
  - Pulmonary granuloma [Not Recovered/Not Resolved]

NARRATIVE: CASE EVENT DATE: 20240620
